FAERS Safety Report 5279137-3 (Version None)
Quarter: 2007Q1

REPORT INFORMATION
  Report Type: 
  Country: None (occurrence: None)
  Receive Date: 20070328
  Receipt Date: 20070117
  Transmission Date: 20070707
  Serious: No
  Sender: FDA-Public Use
  Company Number: US-BRISTOL-MYERS SQUIBB COMPANY-13449640

PATIENT
  Age: 60 Year
  Sex: Female
  Weight: 102 kg

DRUGS (1)
  1. SPRYCEL [Suspect]
     Dosage: SPRYCEL STOPPED IN AUGUST 2006 FOR 2-3 WEEKS, RESTARTED AFTER 05-SEP-2006 AND CONTINUES
     Dates: start: 20060701

REACTIONS (4)
  - NAUSEA [None]
  - PULMONARY OEDEMA [None]
  - RASH PRURITIC [None]
  - RED BLOOD CELL COUNT DECREASED [None]
